FAERS Safety Report 16839657 (Version 1)
Quarter: 2019Q3

REPORT INFORMATION
  Report Type: Spontaneous
  Country: US (occurrence: US)
  Receive Date: 20190731
  Receipt Date: 20190731
  Transmission Date: 20191005
  Serious: Yes (Other)
  Sender: FDA-Public Use
  Company Number: None

PATIENT
  Age: 33 Year
  Sex: Male
  Weight: 68.04 kg

DRUGS (4)
  1. CLONAZEPAM. [Suspect]
     Active Substance: CLONAZEPAM
     Indication: PANIC DISORDER
     Dosage: ?          QUANTITY:60 DF DOSAGE FORM;?
     Route: 048
     Dates: start: 20190701
  2. CLONAZEPAM. [Suspect]
     Active Substance: CLONAZEPAM
     Indication: DEPRESSION
     Dosage: ?          QUANTITY:60 DF DOSAGE FORM;?
     Route: 048
     Dates: start: 20190701
  3. CLONAZEPAM. [Suspect]
     Active Substance: CLONAZEPAM
     Indication: PERSONALITY DISORDER
     Dosage: ?          QUANTITY:60 DF DOSAGE FORM;?
     Route: 048
     Dates: start: 20190701
  4. CLONAZEPAM. [Suspect]
     Active Substance: CLONAZEPAM
     Indication: ANXIETY
     Dosage: ?          QUANTITY:60 DF DOSAGE FORM;?
     Route: 048
     Dates: start: 20190701

REACTIONS (3)
  - Anxiety [None]
  - Muscular weakness [None]
  - Withdrawal syndrome [None]

NARRATIVE: CASE EVENT DATE: 20190701
